FAERS Safety Report 14907958 (Version 2)
Quarter: 2018Q2

REPORT INFORMATION
  Report Type: Spontaneous
  Country: CN (occurrence: CN)
  Receive Date: 20180517
  Receipt Date: 20180530
  Transmission Date: 20180711
  Serious: Yes (Hospitalization)
  Sender: FDA-Public Use
  Company Number: CN-ELI_LILLY_AND_COMPANY-CN201805005401

PATIENT
  Age: 47 Year
  Sex: Male
  Weight: 82.5 kg

DRUGS (3)
  1. HUMULIN 70/30 [Suspect]
     Active Substance: INSULIN HUMAN
     Indication: TYPE 2 DIABETES MELLITUS
     Dosage: 27 U, EACH MORNING
     Route: 058
     Dates: start: 2003, end: 20180503
  2. ACARBOSE. [Concomitant]
     Active Substance: ACARBOSE
     Indication: TYPE 2 DIABETES MELLITUS
     Dosage: 1 DF, BID
     Route: 048
     Dates: start: 2015, end: 20180503
  3. HUMULIN 70/30 [Suspect]
     Active Substance: INSULIN HUMAN
     Dosage: 16 U, EACH EVENING (NIGHT)
     Route: 058
     Dates: start: 2003, end: 20180503

REACTIONS (2)
  - Hypertension [Unknown]
  - Eye disorder [Not Recovered/Not Resolved]

NARRATIVE: CASE EVENT DATE: 2015
